FAERS Safety Report 5683524-9 (Version None)
Quarter: 2008Q1

REPORT INFORMATION
  Report Type: 
  Country: None (occurrence: None)
  Receive Date: 20080326
  Receipt Date: 20080314
  Transmission Date: 20080703
  Serious: Yes (Hospitalization)
  Sender: FDA-Public Use
  Company Number: GXKR2008DK02730

PATIENT
  Age: 79 Year
  Sex: Male

DRUGS (7)
  1. ACETYLSALICYLIC ACID (NGX)(ACETYLSALICYLIC ACID) UNKNOWN [Suspect]
     Indication: ESSENTIAL THROMBOCYTHAEMIA
     Dosage: 75 MG, QD, ORAL
     Route: 048
     Dates: start: 20040101
  2. XAGRID(ANAGRELIDE HYDROCHLORIDE) UNKNOWN, 0.5MG [Suspect]
     Indication: ESSENTIAL THROMBOCYTHAEMIA
     Dosage: 1.5 MG, QD, ORAL
     Route: 048
     Dates: start: 20051222, end: 20080124
  3. PANTOPRAZOLE SODIUM [Concomitant]
  4. SIMVASTATIN [Concomitant]
  5. METOPROLOL TARTRATE [Concomitant]
  6. AMLODIPINE [Concomitant]
  7. CLOPIDOGREL [Concomitant]

REACTIONS (2)
  - ACUTE MYOCARDIAL INFARCTION [None]
  - EPISTAXIS [None]
